FAERS Safety Report 10248607 (Version 1)
Quarter: 2014Q2

REPORT INFORMATION
  Report Type: Spontaneous
  Country: US (occurrence: None)
  Receive Date: 20140617
  Receipt Date: 20140617
  Transmission Date: 20141212
  Serious: Yes (Disabling)
  Sender: FDA-Public Use
  Company Number: None

PATIENT
  Age: 57 Year
  Sex: Female
  Weight: 95.5 kg

DRUGS (2)
  1. PARAPLATIN [Suspect]
     Indication: OVARIAN CANCER
     Dates: start: 200902, end: 200906
  2. CARBOPLATIN [Concomitant]

REACTIONS (6)
  - Tinnitus [None]
  - Migraine [None]
  - Headache [None]
  - Dizziness [None]
  - Impaired driving ability [None]
  - Impaired work ability [None]
